FAERS Safety Report 6644298-8 (Version None)
Quarter: 2010Q1

REPORT INFORMATION
  Report Type: 
  Country: None (occurrence: None)
  Receive Date: 20100322
  Receipt Date: 20100301
  Transmission Date: 20100710
  Serious: Yes (Life-Threatening, Hospitalization, Other)
  Sender: FDA-Public Use
  Company Number: PHEH2009US08395

PATIENT
  Sex: Male
  Weight: 59.2 kg

DRUGS (9)
  1. EXJADE [Suspect]
     Indication: APLASTIC ANAEMIA
     Dosage: 500 MG, QD
     Route: 048
     Dates: start: 20090715, end: 20090818
  2. EXJADE [Suspect]
     Indication: LYMPHOMA
     Dosage: 1000 MG, QD
     Route: 048
     Dates: start: 20091006
  3. EXJADE [Suspect]
     Dosage: 1000 MG, QD
     Route: 048
  4. LISINOPRIL [Concomitant]
  5. SIMVASTATIN [Concomitant]
     Dosage: 10 MG, UNK
  6. PRILOSEC [Concomitant]
     Dosage: 20 MG, UNK
  7. FOLIC ACID [Concomitant]
     Dosage: 1 MG, UNK
  8. MIRALAX [Concomitant]
  9. FLUCONAZOLE [Concomitant]

REACTIONS (13)
  - ABDOMINAL DISCOMFORT [None]
  - ABDOMINAL PAIN [None]
  - ASTHENIA [None]
  - DECREASED APPETITE [None]
  - DIARRHOEA [None]
  - FEBRILE NEUTROPENIA [None]
  - FLATULENCE [None]
  - HYPOTENSION [None]
  - INFECTION [None]
  - LIVER FUNCTION TEST ABNORMAL [None]
  - NAUSEA [None]
  - PYREXIA [None]
  - WHITE BLOOD CELL COUNT DECREASED [None]
